FAERS Safety Report 11990493 (Version 1)
Quarter: 2016Q1

REPORT INFORMATION
  Report Type: Spontaneous
  Country: JP (occurrence: JP)
  Receive Date: 20160202
  Receipt Date: 20160202
  Transmission Date: 20160526
  Serious: Yes (Hospitalization)
  Sender: FDA-Public Use
  Company Number: JP-PFIZER INC-2015356152

PATIENT
  Age: 81 Year
  Sex: Female
  Weight: 29.7 kg

DRUGS (10)
  1. LOSARTAN POTASSIUM. [Concomitant]
     Active Substance: LOSARTAN POTASSIUM
     Dosage: 25 MG, 1X/DAY (IN THE MORNING)
     Route: 048
     Dates: start: 20150916
  2. DEPAKENE [Concomitant]
     Active Substance: VALPROIC ACID
     Dosage: 400 MG, 2X/DAY (IN THE MORNING AND EVENING)
     Route: 048
     Dates: start: 20150916
  3. ALEVIATIN [Interacting]
     Active Substance: PHENYTOIN SODIUM
     Dosage: 100 MG, 2X/DAY (IN THE MORNING AND EVENING)
     Route: 048
     Dates: start: 20150916
  4. FEBURIC [Concomitant]
     Active Substance: FEBUXOSTAT
     Dosage: 40 MG, 1X/DAY(IN THE MORNING)
     Route: 048
     Dates: start: 20150916
  5. WARFARIN [Concomitant]
     Active Substance: WARFARIN
     Dosage: 1.5 MG, 1X/DAY (IN THE MORNING)
     Route: 048
     Dates: start: 20150916
  6. REBAMIPIDE [Concomitant]
     Active Substance: REBAMIPIDE
     Dosage: 100 MG, 2X/DAY (IN THE MORNING AND EVENING)
     Route: 048
     Dates: start: 20151007
  7. CELECOX [Interacting]
     Active Substance: CELECOXIB
     Indication: FALL
     Dosage: 100 MG, 2X/DAY
     Route: 048
     Dates: start: 20151007
  8. SPIRONOLACTONE. [Suspect]
     Active Substance: SPIRONOLACTONE
     Dosage: 25 MG, 1X/DAY (IN THE MORNING)
     Route: 048
     Dates: start: 20150916
  9. PHENYTOIN. [Interacting]
     Active Substance: PHENYTOIN
     Indication: EPILEPSY
     Dosage: 100 MG, 2X/DAY
     Route: 048
  10. RECALBON [Concomitant]
     Active Substance: MINODRONIC ACID
     Dosage: 50 MG, 1X/DAY
     Route: 048
     Dates: start: 20151007

REACTIONS (4)
  - Anticonvulsant drug level increased [Recovering/Resolving]
  - Drug interaction [Recovered/Resolved]
  - International normalised ratio increased [Unknown]
  - Somnolence [Recovering/Resolving]

NARRATIVE: CASE EVENT DATE: 20151013
